FAERS Safety Report 11241002 (Version 2)
Quarter: 2015Q3

REPORT INFORMATION
  Report Type: Spontaneous
  Country: US (occurrence: US)
  Receive Date: 20150706
  Receipt Date: 20150714
  Transmission Date: 20151125
  Serious: No
  Sender: FDA-Public Use
  Company Number: US-009507513-1507USA002237

PATIENT
  Age: 77 Year
  Sex: Male

DRUGS (1)
  1. JANUVIA [Suspect]
     Active Substance: SITAGLIPTIN PHOSPHATE
     Indication: DIABETES MELLITUS
     Dosage: JUST ONCE IN THE MORNING, ORALLY
     Route: 048

REACTIONS (4)
  - Constipation [Unknown]
  - Dysuria [Unknown]
  - Abdominal pain upper [Unknown]
  - Testicular pain [Unknown]
